FAERS Safety Report 5153129-7 (Version None)
Quarter: 2006Q4

REPORT INFORMATION
  Report Type: 
  Country: None (occurrence: None)
  Receive Date: 20061117
  Receipt Date: 20061019
  Transmission Date: 20070319
  Serious: Yes (Hospitalization)
  Sender: FDA-Public Use
  Company Number: IE-GLAXOSMITHKLINE-B0443834A

PATIENT
  Sex: Female
  Weight: 122 kg

DRUGS (2)
  1. CEFUROXIME [Suspect]
     Indication: SINUSITIS
     Dosage: 250MG TWICE PER DAY
     Route: 065
     Dates: start: 20060512, end: 20060516
  2. NORETHINDRONE ACETATE [Suspect]
     Dates: start: 20060401

REACTIONS (11)
  - ABDOMINAL PAIN UPPER [None]
  - ALANINE AMINOTRANSFERASE INCREASED [None]
  - ANOREXIA [None]
  - BLOOD ALKALINE PHOSPHATASE INCREASED [None]
  - BLOOD BILIRUBIN INCREASED [None]
  - BLOOD UREA DECREASED [None]
  - FAECES PALE [None]
  - GAMMA-GLUTAMYLTRANSFERASE INCREASED [None]
  - JAUNDICE [None]
  - PROTEIN TOTAL DECREASED [None]
  - PRURITUS [None]
